FAERS Safety Report 13152439 (Version 1)
Quarter: 2017Q1

REPORT INFORMATION
  Report Type: Not Available
  Country: US (occurrence: US)
  Receive Date: 20170125
  Receipt Date: 20170125
  Transmission Date: 20170428
  Serious: Yes (Other)
  Sender: FDA-Public Use
  Company Number: US-MIDATECHPHARMA-2017-US-000785

PATIENT
  Sex: Female

DRUGS (4)
  1. ONDANSETRON (NON-SPECIFIC) [Suspect]
     Active Substance: ONDANSETRON
     Route: 065
  2. ESCITALOPRAM [Suspect]
     Active Substance: ESCITALOPRAM OXALATE
     Dosage: USED IN FINAL TRIMESTER OF PREGNANCY
     Route: 065
  3. SERTRALINE [Suspect]
     Active Substance: SERTRALINE HYDROCHLORIDE
     Dosage: USED IN INITIAL TWO TRIMESTERS OF PREGNANCY
     Route: 065
  4. PROGESTERONE. [Suspect]
     Active Substance: PROGESTERONE
     Dosage: USED FROM 16TH WEEK OF PREGNANCY
     Route: 065

REACTIONS (3)
  - Multiple organ dysfunction syndrome [None]
  - Drug hypersensitivity [Unknown]
  - Human herpesvirus 6 infection [Unknown]
